FAERS Safety Report 12891322 (Version 2)
Quarter: 2017Q2

REPORT INFORMATION
  Report Type: Spontaneous
  Country: DE (occurrence: DE)
  Receive Date: 20161027
  Receipt Date: 20170516
  Transmission Date: 20170830
  Serious: Yes (Hospitalization, Other)
  Sender: FDA-Public Use
  Company Number: DE-JNJFOC-20161018938

PATIENT
  Sex: Female

DRUGS (4)
  1. REGAINE FRAUEN [Suspect]
     Active Substance: MINOXIDIL
     Indication: ANDROGENETIC ALOPECIA
     Route: 061
     Dates: end: 201609
  2. REGAINE FRAUEN [Suspect]
     Active Substance: MINOXIDIL
     Indication: ANDROGENETIC ALOPECIA
     Route: 061
     Dates: start: 201609
  3. ELL-CRANELL [Suspect]
     Active Substance: ALFATRADIOL\DEXAMETHASONE\SALICYLIC ACID
     Indication: PRODUCT USED FOR UNKNOWN INDICATION
     Dosage: IN MORNING
     Route: 065
  4. GYNOKADIN [Concomitant]
     Active Substance: ESTRADIOL
     Indication: PRODUCT USED FOR UNKNOWN INDICATION
     Route: 065

REACTIONS (6)
  - Atrial fibrillation [Unknown]
  - Myocardial infarction [Recovered/Resolved]
  - Pruritus [Unknown]
  - Contraindicated product administered [Unknown]
  - Hair texture abnormal [Unknown]
  - Inappropriate schedule of drug administration [Unknown]

NARRATIVE: CASE EVENT DATE: 2016
